FAERS Safety Report 24842761 (Version 2)
Quarter: 2025Q1

REPORT INFORMATION
  Report Type: Report from Study
  Country: US (occurrence: US)
  Receive Date: 20250115
  Receipt Date: 20250225
  Transmission Date: 20250409
  Serious: No
  Sender: BridgeBio Pharma
  Company Number: US-BRIDGEBIO-24US000002

PATIENT
  Age: 57 Year
  Sex: Female

DRUGS (2)
  1. ACORAMIDIS [Suspect]
     Active Substance: ACORAMIDIS
     Indication: Amyloidosis
     Dosage: 712 MILLIGRAM, BID
     Route: 065
     Dates: start: 20241216
  2. WAINUA [Concomitant]
     Active Substance: EPLONTERSEN
     Indication: Amyloidosis
     Route: 065

REACTIONS (3)
  - Somnolence [Unknown]
  - Fatigue [Unknown]
  - Intentional dose omission [Unknown]

NARRATIVE: CASE EVENT DATE: 20241216
